FAERS Safety Report 17970294 (Version 1)
Quarter: 2020Q3

REPORT INFORMATION
  Report Type: Report from Study
  Country: None (occurrence: GB)
  Receive Date: 20200701
  Receipt Date: 20200701
  Transmission Date: 20201103
  Serious: Yes (Other)
  Sender: FDA-Public Use
  Company Number: GB-ABBVIE-20K-167-3467572-00

PATIENT

DRUGS (1)
  1. IMBRUVICA [Suspect]
     Active Substance: IBRUTINIB
     Indication: MANTLE CELL LYMPHOMA REFRACTORY
     Route: 048

REACTIONS (10)
  - Atrial fibrillation [Unknown]
  - Thrombocytopenia [Unknown]
  - Folliculitis [Unknown]
  - Arrhythmia [Unknown]
  - Rash [Unknown]
  - Arthralgia [Unknown]
  - Cardiac failure [Unknown]
  - Renal impairment [Unknown]
  - Infection [Unknown]
  - Fatigue [Unknown]
